FAERS Safety Report 8381787-2 (Version None)
Quarter: 2012Q2

REPORT INFORMATION
  Report Type: 
  Country: None (occurrence: None)
  Receive Date: 20120522
  Receipt Date: 20120522
  Transmission Date: 20120825
  Serious: No
  Sender: FDA-Public Use
  Company Number: None

PATIENT
  Age: 40 Year
  Sex: Female
  Weight: 92.9874 kg

DRUGS (1)
  1. SUBOXONE [Suspect]
     Indication: RHEUMATOID ARTHRITIS
     Dosage: 2MG/0.5  2-3 TIMES DAILY SL  PAST YEAR
     Route: 060

REACTIONS (3)
  - PRODUCT QUALITY ISSUE [None]
  - ORAL MUCOSAL BLISTERING [None]
  - PAIN [None]
